FAERS Safety Report 14344774 (Version 1)
Quarter: 2018Q1

REPORT INFORMATION
  Report Type: Spontaneous
  Country: IT (occurrence: IT)
  Receive Date: 20180103
  Receipt Date: 20180103
  Transmission Date: 20180509
  Serious: Yes (Hospitalization)
  Sender: FDA-Public Use
  Company Number: IT-INGENUS PHARMACEUTICALS NJ, LLC-ING201712-000752

PATIENT
  Age: 82 Year
  Sex: Female

DRUGS (2)
  1. CARISOPRODOL AND ASPIRIN [Suspect]
     Active Substance: ASPIRIN\CARISOPRODOL
  2. TRANEXAMIC ACID. [Concomitant]
     Active Substance: TRANEXAMIC ACID

REACTIONS (1)
  - Epistaxis [Recovered/Resolved]
